FAERS Safety Report 7954714-7 (Version None)
Quarter: 2011Q4

REPORT INFORMATION
  Report Type: 
  Country: None (occurrence: None)
  Receive Date: 20111202
  Receipt Date: 20111118
  Transmission Date: 20120403
  Serious: Yes (Other)
  Sender: FDA-Public Use
  Company Number: ES-CELGENEUS-144-21880-11112851

PATIENT
  Age: 66 Year
  Sex: Female

DRUGS (1)
  1. REVLIMID [Suspect]
     Indication: MULTIPLE MYELOMA
     Route: 048
     Dates: start: 20100501, end: 20101201

REACTIONS (4)
  - DIABETES MELLITUS [None]
  - BONE DISORDER [None]
  - NEUROPATHY PERIPHERAL [None]
  - RENAL IMPAIRMENT [None]
